FAERS Safety Report 4586787-6 (Version None)
Quarter: 2005Q1

REPORT INFORMATION
  Report Type: 
  Country: None (occurrence: None)
  Receive Date: 20050218
  Receipt Date: 20050210
  Transmission Date: 20050727
  Serious: Yes (Other)
  Sender: FDA-Public Use
  Company Number: JP-NOVOPROD-242231

PATIENT
  Age: 68 Year
  Sex: Female

DRUGS (1)
  1. GLUCAGON G NOVO [Suspect]
     Indication: ENDOSCOPY GASTROINTESTINAL
     Dosage: 1 MG, UNK
     Route: 030
     Dates: start: 20050127, end: 20050127

REACTIONS (3)
  - FEELING ABNORMAL [None]
  - LOSS OF CONSCIOUSNESS [None]
  - VOMITING [None]
